FAERS Safety Report 4409823-6 (Version None)
Quarter: 2004Q3

REPORT INFORMATION
  Report Type: 
  Country: None (occurrence: None)
  Receive Date: 20040726
  Receipt Date: 20040715
  Transmission Date: 20050211
  Serious: Yes (Death, Hospitalization)
  Sender: FDA-Public Use
  Company Number: STA-AE-04-MTX-026

PATIENT
  Age: 77 Year
  Sex: Female

DRUGS (1)
  1. RHEUMATREX [Suspect]
     Indication: RHEUMATOID ARTHRITIS
     Dosage: 4MG WEEKLY, ORAL
     Route: 048
     Dates: start: 20021021, end: 20031212

REACTIONS (5)
  - BONE MARROW DEPRESSION [None]
  - FEELING ABNORMAL [None]
  - PULMONARY OEDEMA [None]
  - SEPSIS [None]
  - STOMATITIS [None]
